FAERS Safety Report 23978769 (Version 1)
Quarter: 2024Q2

REPORT INFORMATION
  Report Type: Spontaneous
  Country: US (occurrence: US)
  Receive Date: 20240615
  Receipt Date: 20240615
  Transmission Date: 20240716
  Serious: No
  Sender: FDA-Public Use
  Company Number: US-EPICPHARMA-US-2024EPCSPO00722

PATIENT

DRUGS (2)
  1. DEXTROAMPHET SACCHARAT, AMPHET ASPARTATE, DEXTROAMPHET SULFATE AND AMP [Suspect]
     Active Substance: AMPHETAMINE ASPARTATE\AMPHETAMINE ASPARTATE MONOHYDRATE\AMPHETAMINE SULFATE\DEXTROAMPHETAMINE SACCHA
     Indication: Attention deficit hyperactivity disorder
     Route: 065
  2. DEXTROAMPHET SACCHARAT, AMPHET ASPARTATE, DEXTROAMPHET SULFATE AND AMP [Suspect]
     Active Substance: AMPHETAMINE ASPARTATE\AMPHETAMINE ASPARTATE MONOHYDRATE\AMPHETAMINE SULFATE\DEXTROAMPHETAMINE SACCHA
     Route: 065

REACTIONS (17)
  - Abdominal discomfort [Unknown]
  - Somnolence [Unknown]
  - Headache [Unknown]
  - Apathy [Unknown]
  - Asthenia [Unknown]
  - Sedation [Recovered/Resolved]
  - Confusional state [Recovered/Resolved]
  - Nausea [Unknown]
  - Head discomfort [Unknown]
  - Fatigue [Unknown]
  - Irritability [Recovered/Resolved]
  - Vision blurred [Unknown]
  - Depression [Unknown]
  - Drug ineffective [Unknown]
  - Therapeutic response changed [Unknown]
  - Product dose omission issue [Unknown]
  - Product substitution issue [Unknown]
